FAERS Safety Report 7631068-7 (Version None)
Quarter: 2011Q3

REPORT INFORMATION
  Report Type: 
  Country: None (occurrence: None)
  Receive Date: 20110715
  Receipt Date: 20110706
  Transmission Date: 20111222
  Serious: Yes (Hospitalization, Other)
  Sender: FDA-Public Use
  Company Number: 2011SP031452

PATIENT
  Age: 44 Year
  Sex: Female

DRUGS (13)
  1. KALETRA [Concomitant]
  2. FUROSEMIDE [Concomitant]
  3. IBRUPROFEN [Concomitant]
  4. METOPROLOL SUCCINATE [Concomitant]
  5. OXAZEPAM [Concomitant]
  6. PANTOPRAZOLE [Concomitant]
  7. TRAMADOL HCL [Concomitant]
  8. BOCEPREVIR (SCH-503034) [Suspect]
     Indication: HEPATITIS C
     Dosage: 800 MG;TID;PO
     Route: 048
     Dates: start: 20110517
  9. TRUVADA [Concomitant]
  10. PEG-INTRON [Suspect]
     Indication: HEPATITIS C
     Dates: start: 20110401
  11. RIBAVIRIN [Suspect]
     Indication: PRODUCT USED FOR UNKNOWN INDICATION
     Dates: start: 20110401
  12. CLOMIPRAMINE HYDROCHLORIDE [Concomitant]
  13. MOVICOLON [Concomitant]

REACTIONS (4)
  - HYPERSENSITIVITY [None]
  - ARTHRITIS [None]
  - RAYNAUD'S PHENOMENON [None]
  - CELLULITIS [None]
